FAERS Safety Report 22027153 (Version 1)
Quarter: 2023Q1

REPORT INFORMATION
  Report Type: Report from Study
  Country: BR (occurrence: BR)
  Receive Date: 20230223
  Receipt Date: 20230223
  Transmission Date: 20230418
  Serious: Yes (Other)
  Sender: FDA-Public Use
  Company Number: BR-JNJFOC-20230240860

PATIENT
  Age: 50 Year
  Sex: Female
  Weight: 77 kg

DRUGS (2)
  1. REMICADE [Suspect]
     Active Substance: INFLIXIMAB
     Indication: Rheumatoid arthritis
     Route: 041
     Dates: start: 20220428, end: 202212
  2. INFLIXIMAB [Suspect]
     Active Substance: INFLIXIMAB
     Indication: Rheumatoid arthritis
     Dates: start: 202206, end: 202212

REACTIONS (5)
  - Neoplasm malignant [Unknown]
  - Pneumonia bacterial [Unknown]
  - Rheumatoid arthritis [Unknown]
  - Ovarian cyst [Unknown]
  - Off label use [Unknown]

NARRATIVE: CASE EVENT DATE: 20221001
